FAERS Safety Report 6660648-0 (Version None)
Quarter: 2010Q1

REPORT INFORMATION
  Report Type: 
  Country: None (occurrence: None)
  Receive Date: 20100326
  Receipt Date: 20100319
  Transmission Date: 20100710
  Serious: Yes (Life-Threatening, Hospitalization, Other)
  Sender: FDA-Public Use
  Company Number: 2007JP005681

PATIENT
  Age: 47 Year
  Sex: Female

DRUGS (21)
  1. TACROLIMUS [Suspect]
     Indication: LUPUS NEPHRITIS
     Dosage: 1 MG, /D, ORAL; 3 MG, /D, ORAL
     Route: 046
     Dates: start: 20070201, end: 20070801
  2. TACROLIMUS [Suspect]
     Indication: LUPUS NEPHRITIS
     Dosage: 1 MG, /D, ORAL; 3 MG, /D, ORAL
     Route: 046
     Dates: start: 20070802, end: 20071018
  3. PREDNISOLONE [Suspect]
     Indication: LUPUS NEPHRITIS
     Dosage: 12.5 MG, /D, ORAL; 17.5 MG, /D, ORAL
     Route: 046
     Dates: end: 20070219
  4. PREDNISOLONE [Suspect]
     Indication: LUPUS NEPHRITIS
     Dosage: 12.5 MG, /D, ORAL; 17.5 MG, /D, ORAL
     Route: 046
     Dates: start: 20070220
  5. LASIX (FUROSEMIDE) PER ORAL NOS [Suspect]
     Dosage: 40 MG, /D, ORAL
     Route: 048
  6. HERBESSER R (DILTIAZEM HYDROCHLORIDE) PER ORAL NOS [Suspect]
     Indication: AORTIC DISSECTION
     Dosage: 200 MG, /D, ORAL
     Route: 048
     Dates: start: 20071016, end: 20071019
  7. LOSARTAN POTASSIUM [Concomitant]
  8. ONEALFA (ALFACALCIDOL)  TABLET [Concomitant]
  9. LIPITOR [Concomitant]
  10. CALSLOT (MANIDIPINE HYDROCHLORIDE) [Concomitant]
  11. THEODUR (THEOPHYLLINE) PER ORAL NOS [Concomitant]
  12. GASTROM (ECABET MONOSODIUM) GRANULE [Concomitant]
  13. LANSOPRAZOLE [Concomitant]
  14. CALCIUM LACTATE (CALCIUM LACTATE) [Concomitant]
  15. URSO 250 [Concomitant]
  16. CEREKINON (TRIMEBUTINE MALEATE) [Concomitant]
  17. TERSIGAN  (OXITROPIUM BROMIDE) [Concomitant]
  18. ANTIBIOTICS INJECTION [Concomitant]
  19. FAROM (FAROPENEM SODIUM) [Concomitant]
  20. PERDIPINE (NICARDIPINE) INJECTION [Concomitant]
  21. MORPHINE (MORPHINE) INJECTION [Concomitant]

REACTIONS (5)
  - AORTIC DISSECTION [None]
  - BLOOD CREATININE INCREASED [None]
  - CELLULITIS [None]
  - INJURY [None]
  - WHITE BLOOD CELL COUNT INCREASED [None]
